FAERS Safety Report 7072273-0 (Version None)
Quarter: 2010Q4

REPORT INFORMATION
  Report Type: 
  Country: None (occurrence: None)
  Receive Date: 20101029
  Receipt Date: 20091229
  Transmission Date: 20110411
  Serious: No
  Sender: FDA-Public Use
  Company Number: A0837212A

PATIENT
  Age: 62 Year
  Sex: Male

DRUGS (8)
  1. ADVAIR DISKUS 100/50 [Suspect]
     Indication: ASTHMA
     Route: 055
     Dates: start: 20080101
  2. FLOMAX [Concomitant]
  3. PENICILLIN [Concomitant]
  4. AMOXICILLIN [Concomitant]
  5. COUGH MEDICINE [Concomitant]
  6. OTHER MEDICATIONS [Concomitant]
  7. BENZONATATE [Concomitant]
  8. TESSALON [Concomitant]

REACTIONS (1)
  - PALPITATIONS [None]
